FAERS Safety Report 8531815 (Version 2)
Quarter: 2013Q1

REPORT INFORMATION
  Report Type: Spontaneous
  Country: TN (occurrence: TN)
  Receive Date: 20120426
  Receipt Date: 20130213
  Transmission Date: 20140127
  Serious: Yes (Other)
  Sender: FDA-Public Use
  Company Number: PHHY2012TN034333

PATIENT
  Age: 38 Year
  Sex: Male

DRUGS (6)
  1. TACROLIMUS [Suspect]
     Dosage: 10 MG, PER DAY
     Dates: start: 200803
  2. TACROLIMUS [Interacting]
     Dosage: 8 MG, PER DAY
  3. TACROLIMUS [Interacting]
     Dosage: 2 MG PER DAY
  4. THEOPHYLLINE [Interacting]
     Dosage: 300 MG, PER DAY
     Dates: start: 20090617
  5. MYCOPHENOLIC ACID [Concomitant]
     Dosage: 1500 MG, PER DAY
  6. PREDNISONE [Concomitant]
     Dosage: 10 MG, PER DAY

REACTIONS (3)
  - Renal impairment [Recovered/Resolved]
  - Immunosuppressant drug level increased [Recovered/Resolved]
  - Drug interaction [Unknown]
